FAERS Safety Report 24059143 (Version 1)
Quarter: 2024Q3

REPORT INFORMATION
  Report Type: Spontaneous
  Country: IT (occurrence: IT)
  Receive Date: 20240708
  Receipt Date: 20240708
  Transmission Date: 20241016
  Serious: Yes (Hospitalization, Other)
  Sender: AUROBINDO
  Company Number: IT-MINISAL02-993150

PATIENT
  Age: 70 Year
  Sex: Female

DRUGS (4)
  1. CLOPIDOGREL [Suspect]
     Active Substance: CLOPIDOGREL BISULFATE
     Indication: Thrombosis prophylaxis
     Dosage: 75 MILLIGRAM, ONCE A DAY
     Route: 048
  2. NIMESULIDE [Suspect]
     Active Substance: NIMESULIDE
     Indication: Inflammation
     Dosage: 100 MILLIGRAM, TWO TIMES A DAY
     Route: 048
     Dates: start: 20240420, end: 20240501
  3. BISOPROLOL [Concomitant]
     Active Substance: BISOPROLOL\BISOPROLOL FUMARATE
     Indication: Atrial fibrillation
     Dosage: 5 MILLIGRAM, ONCE A DAY
     Route: 048
  4. NORVASC [Concomitant]
     Active Substance: AMLODIPINE BESYLATE
     Indication: Hypertension
     Dosage: 5 MILLIGRAM, ONCE A DAY
     Route: 048

REACTIONS (2)
  - Melaena [Unknown]
  - Rectal haemorrhage [Unknown]

NARRATIVE: CASE EVENT DATE: 20240501
